FAERS Safety Report 7900272-2 (Version None)
Quarter: 2011Q4

REPORT INFORMATION
  Report Type: 
  Country: None (occurrence: None)
  Receive Date: 20111108
  Receipt Date: 20111027
  Transmission Date: 20120403
  Serious: Yes (Other)
  Sender: FDA-Public Use
  Company Number: US-JNJFOC-20111012565

PATIENT
  Sex: Male
  Weight: 104.33 kg

DRUGS (12)
  1. SIMCOR [Suspect]
     Indication: BLOOD CHOLESTEROL INCREASED
     Route: 048
     Dates: end: 20110801
  2. CRESTOR [Concomitant]
     Indication: BLOOD CHOLESTEROL INCREASED
  3. NIASPAN [Concomitant]
     Indication: BLOOD CHOLESTEROL INCREASED
  4. HYDROCODONE BITARTRATE [Concomitant]
     Indication: PSORIATIC ARTHROPATHY
     Dosage: AS NEEDED
     Route: 048
  5. CELEBREX [Concomitant]
     Indication: PSORIATIC ARTHROPATHY
     Route: 048
  6. REMICADE [Suspect]
     Indication: PSORIATIC ARTHROPATHY
     Route: 042
  7. OMEPRAZOLE [Concomitant]
     Indication: GASTROOESOPHAGEAL REFLUX DISEASE
     Route: 048
  8. FOLIC ACID [Concomitant]
     Indication: HYPOVITAMINOSIS
     Route: 048
  9. BENAZEPRIL HYDROCHLORIDE [Concomitant]
     Indication: HYPERTENSION
     Route: 048
  10. METHOTREXATE [Concomitant]
     Indication: ARTHRITIS
  11. ACTONEL [Concomitant]
     Indication: OSTEOPOROSIS
     Route: 048
     Dates: start: 20060101
  12. HYDROCODONE BITARTRATE [Concomitant]
     Indication: PAIN
     Dosage: AS NEEDED
     Route: 048

REACTIONS (4)
  - EAR INFECTION [None]
  - TENDON RUPTURE [None]
  - PSORIATIC ARTHROPATHY [None]
  - DRUG INEFFECTIVE [None]
